FAERS Safety Report 12641182 (Version 1)
Quarter: 2016Q3

REPORT INFORMATION
  Report Type: Spontaneous
  Country: US (occurrence: US)
  Receive Date: 20160810
  Receipt Date: 20160810
  Transmission Date: 20161109
  Serious: No
  Sender: FDA-Public Use
  Company Number: US-PFIZER INC-2016358895

PATIENT
  Age: 54 Year
  Sex: Female

DRUGS (10)
  1. DULOXETINE HCL [Concomitant]
     Active Substance: DULOXETINE HYDROCHLORIDE
     Dosage: UNK
  2. MELOXICAM. [Concomitant]
     Active Substance: MELOXICAM
     Dosage: 15 MG, UNK
  3. ADVAIR DISKUS [Concomitant]
     Active Substance: FLUTICASONE PROPIONATE\SALMETEROL XINAFOATE
     Dosage: UNK
  4. PRAVASTATIN SODIUM. [Concomitant]
     Active Substance: PRAVASTATIN SODIUM
     Dosage: UNK
  5. XELJANZ XR [Suspect]
     Active Substance: TOFACITINIB CITRATE
     Dosage: 11 MG, DAILY(TAKE 1 TABLET BY MOUTH EVERY DAY AS DIRECTED)
     Route: 048
     Dates: start: 20160714
  6. CLONAZEPAM. [Concomitant]
     Active Substance: CLONAZEPAM
     Dosage: 1 MG, UNK
  7. FLUTICASONE PROPIONATE. [Concomitant]
     Active Substance: FLUTICASONE PROPIONATE
     Dosage: UNK
  8. KETOCONAZOLE CRE [Concomitant]
     Dosage: 2 %, UNK
  9. ATORVASTATIN CALCIUM. [Concomitant]
     Active Substance: ATORVASTATIN CALCIUM
  10. CYMBALTA [Concomitant]
     Active Substance: DULOXETINE HYDROCHLORIDE
     Dosage: 60 MG, UNK

REACTIONS (3)
  - Burning sensation [Not Recovered/Not Resolved]
  - Headache [Not Recovered/Not Resolved]
  - Dizziness [Not Recovered/Not Resolved]
